FAERS Safety Report 12119761 (Version 2)
Quarter: 2016Q3

REPORT INFORMATION
  Report Type: Spontaneous
  Country: US (occurrence: US)
  Receive Date: 20160226
  Receipt Date: 20160727
  Transmission Date: 20161109
  Serious: No
  Sender: FDA-Public Use
  Company Number: US-CELGENEUS-USA-2016025973

PATIENT

DRUGS (1)
  1. OTEZLA [Suspect]
     Active Substance: APREMILAST
     Indication: PSORIASIS
     Dosage: STARTER PACK
     Route: 048
     Dates: start: 20150907

REACTIONS (4)
  - Headache [Unknown]
  - Tremor [Recovering/Resolving]
  - Malaise [Unknown]
  - Diarrhoea [Unknown]

NARRATIVE: CASE EVENT DATE: 201512
